FAERS Safety Report 22302123 (Version 6)
Quarter: 2023Q4

REPORT INFORMATION
  Report Type: Spontaneous
  Country: US (occurrence: US)
  Receive Date: 20230510
  Receipt Date: 20231114
  Transmission Date: 20240110
  Serious: Yes (Hospitalization, Other)
  Sender: FDA-Public Use
  Company Number: US-BRISTOL-MYERS SQUIBB COMPANY-2023-065004

PATIENT
  Age: 81 Year
  Sex: Female

DRUGS (5)
  1. LENALIDOMIDE [Suspect]
     Active Substance: LENALIDOMIDE
     Indication: 5q minus syndrome
     Dosage: TAKE 1 CAPSULE BY MOUTH EVERY DAY
     Route: 048
     Dates: start: 20220523
  2. LENALIDOMIDE [Suspect]
     Active Substance: LENALIDOMIDE
     Dosage: FREQUENCY: TAKE 1 CAPSULE BY MOUTH EVERYDAY.
     Route: 048
     Dates: start: 20221025
  3. LENALIDOMIDE [Suspect]
     Active Substance: LENALIDOMIDE
     Dosage: TAKE 1 CAPSULE BY ?MOUTH EVERY DAY. ?DO NOT BREAK, CHEW ?OR OPEN CAPSULES
     Route: 048
     Dates: start: 20230210
  4. LENALIDOMIDE [Suspect]
     Active Substance: LENALIDOMIDE
     Dosage: TAKE 1 CAPSULE BY MOUTH EVERY DAY
     Route: 048
  5. LENALIDOMIDE [Suspect]
     Active Substance: LENALIDOMIDE
     Route: 048
     Dates: start: 20231021

REACTIONS (8)
  - Neuropathy peripheral [Unknown]
  - Constipation [Unknown]
  - Renal impairment [Not Recovered/Not Resolved]
  - COVID-19 [Recovered/Resolved]
  - Dehydration [Recovered/Resolved]
  - Bronchitis [Recovering/Resolving]
  - Fatigue [Unknown]
  - Skin disorder [Unknown]

NARRATIVE: CASE EVENT DATE: 20230620
